FAERS Safety Report 18646683 (Version 1)
Quarter: 2020Q4

REPORT INFORMATION
  Report Type: Other
  Country: US (occurrence: US)
  Receive Date: 20201221
  Receipt Date: 20201221
  Transmission Date: 20210114
  Serious: Yes (Other)
  Sender: FDA-Public Use
  Company Number: US-ACORDA-ACO_167103_2020

PATIENT
  Age: 58 Year
  Sex: Female

DRUGS (1)
  1. INBRIJA [Suspect]
     Active Substance: LEVODOPA
     Indication: PARKINSON^S DISEASE
     Dosage: 84 MILLIGRAM, PRN, NOT TO EXCEED 5 TIMES DAILY

REACTIONS (3)
  - Cardiac operation [Unknown]
  - Ill-defined disorder [Unknown]
  - Temperature intolerance [Unknown]

NARRATIVE: CASE EVENT DATE: 202009
